FAERS Safety Report 7106987-0 (Version None)
Quarter: 2010Q4

REPORT INFORMATION
  Report Type: 
  Country: None (occurrence: None)
  Receive Date: 20101116
  Receipt Date: 20101109
  Transmission Date: 20110411
  Serious: No
  Sender: FDA-Public Use
  Company Number: US-ABBOTT-10P-163-0684249-00

PATIENT
  Sex: Male
  Weight: 88.076 kg

DRUGS (1)
  1. SIMCOR [Suspect]
     Indication: HYPERLIPIDAEMIA
     Dosage: 500/40 AT NIGHT
     Dates: start: 20101026

REACTIONS (1)
  - PRURITUS [None]
